FAERS Safety Report 5581448-9 (Version None)
Quarter: 2007Q4

REPORT INFORMATION
  Report Type: 
  Country: None (occurrence: None)
  Receive Date: 20071231
  Receipt Date: 20071231
  Transmission Date: 20080405
  Serious: Yes (Other)
  Sender: FDA-Public Use
  Company Number: None

PATIENT
  Age: 56 Year
  Sex: Male
  Weight: 83.9154 kg

DRUGS (1)
  1. LIDODERM [Suspect]
     Indication: NEUROPATHY PERIPHERAL
     Dosage: UP TO 3 PATCHES FOR UP TO 12HR   1 X 24 HR PERIOD  TRANSDERMAL
     Route: 062
     Dates: start: 20070601, end: 20071201

REACTIONS (7)
  - APPLICATION SITE ERYTHEMA [None]
  - APPLICATION SITE PRURITUS [None]
  - DERMATITIS CONTACT [None]
  - EXPOSURE TO TOXIC AGENT [None]
  - NO THERAPEUTIC RESPONSE [None]
  - PAIN IN EXTREMITY [None]
  - SELF-MEDICATION [None]
